FAERS Safety Report 10786085 (Version 1)
Quarter: 2015Q1

REPORT INFORMATION
  Report Type: Spontaneous
  Country: US (occurrence: US)
  Receive Date: 20150211
  Receipt Date: 20150211
  Transmission Date: 20150721
  Serious: Yes (Hospitalization, Other)
  Sender: FDA-Public Use
  Company Number: US-ASTRAZENECA-2015SE12439

PATIENT
  Age: 64 Year
  Sex: Male
  Weight: 141.5 kg

DRUGS (24)
  1. XIGDUO XR [Suspect]
     Active Substance: DAPAGLIFLOZIN PROPANEDIOL\METFORMIN HYDROCHLORIDE
     Indication: TYPE 2 DIABETES MELLITUS
     Route: 048
     Dates: start: 20150125, end: 20150128
  2. SPECTRA [Concomitant]
  3. FLUTICASONE [Concomitant]
     Active Substance: FLUTICASONE\FLUTICASONE PROPIONATE
  4. VITAMIN D [Concomitant]
     Active Substance: CHOLECALCIFEROL
  5. SPIRONOLACTONE. [Concomitant]
     Active Substance: SPIRONOLACTONE
     Dates: end: 201412
  6. ACTOS [Concomitant]
     Active Substance: PIOGLITAZONE HYDROCHLORIDE
  7. TAZTIA XT [Concomitant]
     Active Substance: DILTIAZEM HYDROCHLORIDE
  8. METOPROLOL [Concomitant]
     Active Substance: METOPROLOL
  9. XIGDUO XR [Suspect]
     Active Substance: DAPAGLIFLOZIN PROPANEDIOL\METFORMIN HYDROCHLORIDE
     Indication: TYPE 2 DIABETES MELLITUS
     Dosage: 5/1000MG DAILY
     Route: 048
     Dates: start: 20141212, end: 20141222
  10. PIOGLITAZONE [Suspect]
     Active Substance: PIOGLITAZONE
     Dosage: WHOLE DOSE
     Route: 065
  11. ANDROGEL [Concomitant]
     Active Substance: TESTOSTERONE
     Dosage: 1 DF BID, 1 DF=1.62
  12. ATORVASTATIN [Concomitant]
     Active Substance: ATORVASTATIN
  13. SPIRONOLACTONE. [Concomitant]
     Active Substance: SPIRONOLACTONE
     Dates: start: 20150109
  14. FLECAINIDE [Concomitant]
     Active Substance: FLECAINIDE
     Dosage: BID
  15. VICTOZA [Suspect]
     Active Substance: LIRAGLUTIDE
     Route: 065
     Dates: start: 201412, end: 20150106
  16. FUROSEMIDE. [Suspect]
     Active Substance: FUROSEMIDE
     Route: 065
     Dates: start: 201412, end: 20150106
  17. PIOGLITAZONE [Suspect]
     Active Substance: PIOGLITAZONE
     Route: 065
  18. SUPPLEMENTS [Concomitant]
     Active Substance: UNSPECIFIED INGREDIENT
  19. LISINOPRIL. [Concomitant]
     Active Substance: LISINOPRIL
     Dosage: 20 MG QAM/40 MG QPM
  20. KETOCONAZOLE. [Concomitant]
     Active Substance: KETOCONAZOLE
  21. XIGDUO XR [Suspect]
     Active Substance: DAPAGLIFLOZIN PROPANEDIOL\METFORMIN HYDROCHLORIDE
     Indication: TYPE 2 DIABETES MELLITUS
     Dosage: 5/1000MG TWICE DAILY
     Route: 048
     Dates: start: 20141223
  22. PIOGLITAZONE [Suspect]
     Active Substance: PIOGLITAZONE
     Dosage: HALF DOSE
     Route: 065
  23. GLIMEPIRIDE. [Concomitant]
     Active Substance: GLIMEPIRIDE
  24. CIALIS [Concomitant]
     Active Substance: TADALAFIL

REACTIONS (14)
  - Arthritis [Recovering/Resolving]
  - Ocular hyperaemia [Unknown]
  - Arthralgia [Recovered/Resolved]
  - Vision blurred [Recovering/Resolving]
  - Arthritis [Recovered/Resolved with Sequelae]
  - Urticaria [Recovering/Resolving]
  - Blood pressure increased [Recovered/Resolved]
  - Nodule [Recovering/Resolving]
  - Asthenia [Unknown]
  - Finger deformity [Recovering/Resolving]
  - Blood glucose abnormal [Unknown]
  - Drug ineffective [Unknown]
  - Heart rate increased [Recovered/Resolved]
  - Dyspnoea [Unknown]

NARRATIVE: CASE EVENT DATE: 2014
